FAERS Safety Report 11362821 (Version 1)
Quarter: 2015Q3

REPORT INFORMATION
  Report Type: Spontaneous
  Country: US (occurrence: None)
  Receive Date: 20150807
  Receipt Date: 20150807
  Transmission Date: 20151125
  Serious: Yes (Other)
  Sender: FDA-Public Use
  Company Number: COR_00341_2015

PATIENT
  Age: 27 Year
  Sex: Female

DRUGS (5)
  1. CYCLOPHOSPHAMIDE. [Suspect]
     Active Substance: CYCLOPHOSPHAMIDE
     Indication: BENIGN HYDATIDIFORM MOLE
     Dosage: 9 BIWEEKLY CYCLES
  2. DACTINOMYCIN [Suspect]
     Active Substance: DACTINOMYCIN
     Indication: BENIGN HYDATIDIFORM MOLE
     Dosage: 9 BIWEEKLY CYCLES
  3. METHOTREXATE [Suspect]
     Active Substance: METHOTREXATE
     Indication: BENIGN HYDATIDIFORM MOLE
     Dosage: SINGLE CYCLE
  4. VINCRISTINE [Suspect]
     Active Substance: VINCRISTINE
     Indication: BENIGN HYDATIDIFORM MOLE
     Dosage: 9 BIWEEKLY CYCLES
  5. ETOPOSIDE. [Suspect]
     Active Substance: ETOPOSIDE
     Indication: BENIGN HYDATIDIFORM MOLE
     Dosage: 9 BIWEEKLY CYCLES

REACTIONS (4)
  - Acute myeloid leukaemia [None]
  - Fatigue [None]
  - Oropharyngeal pain [None]
  - Petechiae [None]
